FAERS Safety Report 21836787 (Version 1)
Quarter: 2023Q1

REPORT INFORMATION
  Report Type: Spontaneous
  Country: US (occurrence: US)
  Receive Date: 20230109
  Receipt Date: 20230109
  Transmission Date: 20230417
  Serious: No
  Sender: FDA-Public Use
  Company Number: US-LEO Pharma-347782

PATIENT
  Sex: Male

DRUGS (1)
  1. ADBRY [Suspect]
     Active Substance: TRALOKINUMAB-LDRM
     Indication: Dermatitis atopic
     Dosage: UNKNOWN
     Dates: start: 20221115

REACTIONS (5)
  - Lacrimation increased [Unknown]
  - Eye pruritus [Not Recovered/Not Resolved]
  - Rhinorrhoea [Not Recovered/Not Resolved]
  - Sneezing [Not Recovered/Not Resolved]
  - Eye inflammation [Not Recovered/Not Resolved]
